FAERS Safety Report 8172386-6 (Version None)
Quarter: 2012Q1

REPORT INFORMATION
  Report Type: 
  Country: None (occurrence: None)
  Receive Date: 20120229
  Receipt Date: 20120221
  Transmission Date: 20120608
  Serious: No
  Sender: FDA-Public Use
  Company Number: US-BIOGENIDEC-2012BI006781

PATIENT
  Age: 31 Year
  Sex: Female

DRUGS (2)
  1. WELLBUTRIN [Concomitant]
     Indication: EX-TOBACCO USER
  2. AVONEX [Suspect]
     Indication: MULTIPLE SCLEROSIS
     Route: 030
     Dates: start: 20120217

REACTIONS (4)
  - INFLUENZA LIKE ILLNESS [None]
  - FLUSHING [None]
  - DIZZINESS [None]
  - MYDRIASIS [None]
